FAERS Safety Report 12147781 (Version 4)
Quarter: 2016Q2

REPORT INFORMATION
  Report Type: Report from Study
  Country: RU (occurrence: RU)
  Receive Date: 20160304
  Receipt Date: 20160408
  Transmission Date: 20160815
  Serious: Yes (Death)
  Sender: FDA-Public Use
  Company Number: RU-PFIZER INC-2016128463

PATIENT
  Age: 58 Year
  Sex: Female
  Weight: 92 kg

DRUGS (6)
  1. LETROZOLE. [Suspect]
     Active Substance: LETROZOLE
     Indication: BREAST CANCER
     Dosage: 2.5 MG, ONCE DAILY
     Route: 048
     Dates: start: 20140228, end: 20160223
  2. PREDUCTAL [Concomitant]
     Active Substance: TRIMETAZIDINE DIHYDROCHLORIDE
     Indication: ASTHENIA
     Dosage: 1 TABLET, BID
     Route: 048
     Dates: start: 20140730
  3. ESSENTIALE (PHOSPHOLIPIDS) [Concomitant]
     Indication: ASPARTATE AMINOTRANSFERASE INCREASED
     Dosage: 2 DF, 3X/DAY
     Route: 048
     Dates: start: 20151211
  4. ESSENTIALE (PHOSPHOLIPIDS) [Concomitant]
     Indication: ALANINE AMINOTRANSFERASE INCREASED
  5. SORBIFER DURULES [Concomitant]
     Active Substance: FERROUS SULFATE
     Indication: ANAEMIA
     Dosage: 2 TABLET, TID
     Route: 048
     Dates: start: 20160115
  6. PALBOCICLIB [Suspect]
     Active Substance: PALBOCICLIB
     Indication: BREAST CANCER
     Dosage: 125 MG, CYCLIC (ONCE DAILY, 3 WEEKS ON/ 1 WEEK OFF, EVERY 28 DAY CYCLE)
     Route: 048
     Dates: start: 20140228, end: 20160223

REACTIONS (1)
  - Death [Fatal]

NARRATIVE: CASE EVENT DATE: 20160225
